FAERS Safety Report 15912296 (Version 1)
Quarter: 2019Q1

REPORT INFORMATION
  Report Type: Spontaneous
  Country: US (occurrence: US)
  Receive Date: 20190204
  Receipt Date: 20190204
  Transmission Date: 20190417
  Serious: No
  Sender: FDA-Public Use
  Company Number: US-ABBVIE-18K-163-2424753-00

PATIENT
  Age: 62 Year
  Sex: Female

DRUGS (6)
  1. HUMIRA [Suspect]
     Active Substance: ADALIMUMAB
     Indication: POLYARTHRITIS
     Route: 058
     Dates: start: 201804, end: 201806
  2. ACETONIDE DE FLUCLOROLONE [Concomitant]
     Indication: PRODUCT USED FOR UNKNOWN INDICATION
  3. PREDNISONE. [Suspect]
     Active Substance: PREDNISONE
     Indication: PRODUCT USED FOR UNKNOWN INDICATION
     Route: 065
     Dates: start: 201804
  4. HUMIRA [Suspect]
     Active Substance: ADALIMUMAB
     Indication: COLITIS ULCERATIVE
  5. HUMIRA [Suspect]
     Active Substance: ADALIMUMAB
     Indication: ANGINA UNSTABLE
  6. TRIAMCINOLONE [Concomitant]
     Active Substance: TRIAMCINOLONE
     Indication: PRODUCT USED FOR UNKNOWN INDICATION

REACTIONS (23)
  - Bandaemia [Unknown]
  - Haematochezia [Unknown]
  - Weight decreased [Unknown]
  - Change of bowel habit [Unknown]
  - Arthralgia [Unknown]
  - Rash erythematous [Unknown]
  - Colitis [Unknown]
  - Drug specific antibody present [Unknown]
  - Varicose vein [Unknown]
  - Frequent bowel movements [Unknown]
  - Rash pruritic [Unknown]
  - Gastrointestinal inflammation [Unknown]
  - Rash [Unknown]
  - Faeces discoloured [Unknown]
  - Seasonal allergy [Unknown]
  - Gastrointestinal wall thickening [Unknown]
  - Fatigue [Unknown]
  - Diarrhoea haemorrhagic [Unknown]
  - Abdominal pain [Unknown]
  - Back pain [Unknown]
  - Diarrhoea [Unknown]
  - Skin abrasion [Unknown]
  - Pain [Unknown]

NARRATIVE: CASE EVENT DATE: 2018
